FAERS Safety Report 9734162 (Version 5)
Quarter: 2014Q1

REPORT INFORMATION
  Report Type: Spontaneous
  Country: AU (occurrence: AU)
  Receive Date: 20131205
  Receipt Date: 20140219
  Transmission Date: 20141002
  Serious: Yes (Hospitalization, Other)
  Sender: FDA-Public Use
  Company Number: AU-CELGENEUS-008-50794-13080426

PATIENT
  Age: 70 Year
  Sex: Female
  Weight: 56 kg

DRUGS (13)
  1. VIDAZA [Suspect]
     Indication: CHRONIC MYELOMONOCYTIC LEUKAEMIA
     Dosage: 60 MILLIGRAM
     Route: 058
     Dates: start: 20130723, end: 20130730
  2. VIDAZA [Suspect]
     Indication: MYELODYSPLASTIC SYNDROME
     Dosage: 60 MILLIGRAM
     Route: 058
     Dates: start: 20130821, end: 20130827
  3. VIDAZA [Suspect]
     Dosage: 85 MILLIGRAM
     Route: 058
     Dates: start: 20131015, end: 20131022
  4. VIDAZA [Suspect]
     Route: 058
     Dates: start: 20131126, end: 20131204
  5. VIDAZA [Suspect]
     Route: 058
  6. VIDAZA [Suspect]
     Route: 058
     Dates: start: 20131230
  7. VIDAZA [Suspect]
     Route: 058
     Dates: start: 20140107, end: 20140114
  8. VIDAZA [Suspect]
     Route: 058
     Dates: start: 20130203
  9. LEXOPRO ESCITALOPRAM [Concomitant]
     Indication: PRODUCT USED FOR UNKNOWN INDICATION
     Route: 065
  10. AMITRIPTYLINE ENDEP [Concomitant]
     Indication: PRODUCT USED FOR UNKNOWN INDICATION
     Route: 065
  11. FISH OIL [Concomitant]
     Indication: PRODUCT USED FOR UNKNOWN INDICATION
     Route: 065
  12. PREDNISONE [Concomitant]
     Indication: PRODUCT USED FOR UNKNOWN INDICATION
     Route: 065
  13. MULTIVITAMINS [Concomitant]
     Indication: PRODUCT USED FOR UNKNOWN INDICATION
     Route: 065

REACTIONS (11)
  - Monocyte count increased [Unknown]
  - Cellulitis [Recovered/Resolved]
  - Cellulitis [Recovered/Resolved]
  - Injection site erythema [Recovered/Resolved]
  - Injection site erythema [Recovered/Resolved]
  - Cellulitis [Unknown]
  - Injection site erythema [Recovering/Resolving]
  - Cellulitis [Not Recovered/Not Resolved]
  - Injection site reaction [Not Recovered/Not Resolved]
  - Migraine [Not Recovered/Not Resolved]
  - Injection site erythema [Not Recovered/Not Resolved]
